FAERS Safety Report 17130004 (Version 1)
Quarter: 2019Q4

REPORT INFORMATION
  Report Type: Spontaneous
  Country: US (occurrence: US)
  Receive Date: 20191209
  Receipt Date: 20191209
  Transmission Date: 20200122
  Serious: No
  Sender: FDA-Public Use
  Company Number: US-SA-2019SA340337

PATIENT
  Sex: Female

DRUGS (3)
  1. EUCRISA [Concomitant]
     Active Substance: CRISABOROLE
  2. IBUPROFEN. [Concomitant]
     Active Substance: IBUPROFEN
  3. DUPIXENT [Suspect]
     Active Substance: DUPILUMAB
     Indication: DERMATITIS ATOPIC
     Dosage: 300 MG, QOW
     Route: 058

REACTIONS (6)
  - Dry skin [Unknown]
  - Skin exfoliation [Unknown]
  - Dermatitis atopic [Unknown]
  - Eczema [Unknown]
  - Pruritus [Unknown]
  - Pain [Unknown]

NARRATIVE: CASE EVENT DATE: 201911
